FAERS Safety Report 8610602-4 (Version None)
Quarter: 2012Q3

REPORT INFORMATION
  Report Type: 
  Country: None (occurrence: None)
  Receive Date: 20120822
  Receipt Date: 20120816
  Transmission Date: 20120928
  Serious: Yes (Hospitalization, Other)
  Sender: FDA-Public Use
  Company Number: PHHY2012FR071252

PATIENT
  Sex: Female

DRUGS (6)
  1. ZOLOFT [Concomitant]
     Dosage: 50 MG, QD
  2. PREVISCAN [Concomitant]
     Dosage: 20 MG, QD
  3. NITROGLYCERIN [Concomitant]
     Dosage: 10 MG/24 HOURS
  4. EXELON [Suspect]
     Indication: COGNITIVE DISORDER
     Dosage: 4.5 MG, BID
     Route: 048
  5. CORDARONE [Interacting]
     Indication: ATRIAL FIBRILLATION
     Dosage: 200 MG, UNK
     Dates: start: 20120101
  6. ATACAND [Concomitant]
     Dosage: 8 MG, QD

REACTIONS (10)
  - PROTHROMBIN TIME RATIO DECREASED [None]
  - ATRIOVENTRICULAR BLOCK [None]
  - BRADYCARDIA [None]
  - URINARY TRACT INFECTION [None]
  - INTERNATIONAL NORMALISED RATIO INCREASED [None]
  - DRUG INTERACTION [None]
  - C-REACTIVE PROTEIN INCREASED [None]
  - KLEBSIELLA INFECTION [None]
  - PYREXIA [None]
  - GLOMERULAR FILTRATION RATE DECREASED [None]
